FAERS Safety Report 16591205 (Version 1)
Quarter: 2019Q3

REPORT INFORMATION
  Report Type: Not Available
  Country: US (occurrence: US)
  Receive Date: 20190718
  Receipt Date: 20190718
  Transmission Date: 20191004
  Serious: Yes (Hospitalization)
  Sender: FDA-Public Use
  Company Number: US-SWEDISH ORPHAN BIOVITRUM-2018US0668

PATIENT
  Age: 80 Year
  Sex: Male

DRUGS (2)
  1. KINERET [Suspect]
     Active Substance: ANAKINRA
     Route: 058
     Dates: start: 20180522, end: 20180529
  2. KINERET [Suspect]
     Active Substance: ANAKINRA
     Dates: start: 20180515, end: 20180520

REACTIONS (1)
  - Abscess [Unknown]

NARRATIVE: CASE EVENT DATE: 201805
